FAERS Safety Report 6432989-3 (Version None)
Quarter: 2009Q4

REPORT INFORMATION
  Report Type: 
  Country: None (occurrence: None)
  Receive Date: 20091109
  Receipt Date: 20091030
  Transmission Date: 20100525
  Serious: Yes (Hospitalization)
  Sender: FDA-Public Use
  Company Number: FR-B.I. PHARMACEUTICALS,INC./RIDGEFIELD-2009-FF-00740FF

PATIENT
  Sex: Female

DRUGS (4)
  1. SIFROL [Suspect]
     Indication: RESTLESS LEGS SYNDROME
     Dosage: 1.05 MG
     Route: 048
     Dates: start: 20090910, end: 20090924
  2. SINEMET [Concomitant]
  3. XANAX [Concomitant]
  4. UNKNOWN TREATMENT FOR OSTEOPOROSIS [Concomitant]

REACTIONS (4)
  - ANXIETY [None]
  - CONDITION AGGRAVATED [None]
  - PARANOIA [None]
  - PSYCHOMOTOR HYPERACTIVITY [None]
